FAERS Safety Report 5906394-X (Version None)
Quarter: 2008Q4

REPORT INFORMATION
  Report Type: 
  Country: None (occurrence: None)
  Receive Date: 20081002
  Receipt Date: 20080904
  Transmission Date: 20090506
  Serious: Yes (Other)
  Sender: FDA-Public Use
  Company Number: GB-AMGEN-UK306114

PATIENT
  Age: 49 Year
  Sex: Female

DRUGS (4)
  1. NEUPOGEN [Suspect]
     Indication: ACUTE MYELOID LEUKAEMIA
     Route: 065
  2. CYTARABINE [Suspect]
     Route: 065
  3. FLUDARABINE PHOSPHATE [Suspect]
  4. IDARUBICIN HCL [Suspect]
     Route: 065

REACTIONS (2)
  - NEUTROPENIC SEPSIS [None]
  - OPPORTUNISTIC INFECTION [None]
